FAERS Safety Report 9297163 (Version 3)
Quarter: 2013Q2

REPORT INFORMATION
  Report Type: Report from Study
  Country: US (occurrence: US)
  Receive Date: 20130520
  Receipt Date: 20130626
  Transmission Date: 20140414
  Serious: Yes (Other)
  Sender: FDA-Public Use
  Company Number: US-ROCHE-1226220

PATIENT
  Sex: Male
  Weight: 70.37 kg

DRUGS (3)
  1. PEGASYS [Suspect]
     Indication: CHRONIC HEPATITIS C
     Route: 065
     Dates: start: 20130412, end: 20130516
  2. RIBASPHERE [Suspect]
     Indication: CHRONIC HEPATITIS C
     Route: 065
     Dates: start: 20130412
  3. RIBASPHERE [Suspect]
     Route: 065
     Dates: end: 20130516

REACTIONS (6)
  - Bone marrow disorder [Unknown]
  - Neutrophil count decreased [Unknown]
  - Platelet count decreased [Unknown]
  - Asthenia [Unknown]
  - Asthenia [Unknown]
  - Asthenia [Unknown]
